FAERS Safety Report 26141343 (Version 1)
Quarter: 2025Q4

REPORT INFORMATION
  Report Type: Spontaneous
  Country: US (occurrence: US)
  Receive Date: 20251210
  Receipt Date: 20251210
  Transmission Date: 20260117
  Serious: Yes (Death, Life-Threatening, Hospitalization, Other)
  Sender: AMGEN
  Company Number: US-AMGEN-USASP2025239866

PATIENT

DRUGS (1)
  1. PREDNISONE [Suspect]
     Active Substance: PREDNISONE
     Indication: COVID-19
     Dosage: UNK
     Route: 065

REACTIONS (6)
  - Death [Fatal]
  - COVID-19 [Unknown]
  - Renal failure [Unknown]
  - Clostridium difficile infection [Unknown]
  - Drug hypersensitivity [Unknown]
  - Off label use [Unknown]
